FAERS Safety Report 8790394 (Version 1)
Quarter: 2012Q4

REPORT INFORMATION
  Report Type: 
  Country: NL (occurrence: NL)
  Receive Date: 20120917
  Receipt Date: 20120917
  Transmission Date: 20130627
  Serious: Yes (Hospitalization)
  Sender: FDA-Public Use
  Company Number: NL-JNJFOC-20120904869

PATIENT
  Age: 65 None
  Sex: Male

DRUGS (10)
  1. REMICADE [Suspect]
     Indication: COLITIS ULCERATIVE
     Route: 042
     Dates: start: 20120320, end: 20120725
  2. REMICADE [Suspect]
     Indication: COLITIS ULCERATIVE
     Route: 042
     Dates: start: 201201
  3. REMICADE [Suspect]
     Indication: COLITIS ULCERATIVE
     Dosage: at 0, 2 6 weeks
     Route: 042
     Dates: start: 20110127
  4. PURINETHOL [Concomitant]
     Route: 065
     Dates: start: 20120511
  5. SALASOPYRINE [Concomitant]
     Route: 065
     Dates: start: 20040401
  6. SALOFALK [Concomitant]
     Route: 065
     Dates: start: 20040101
  7. ZYRTEC [Concomitant]
     Route: 065
     Dates: start: 20110820
  8. PREDNISOLONE [Concomitant]
     Route: 065
     Dates: start: 20120401
  9. AMITRIPTYLINE HYDROCHLORIDE [Concomitant]
     Route: 065
     Dates: start: 20120301
  10. ACENOCOUMAROL [Concomitant]
     Route: 065
     Dates: start: 20120420

REACTIONS (4)
  - Diaphragmatic disorder [Not Recovered/Not Resolved]
  - Colitis [Unknown]
  - Pruritus [Unknown]
  - Drug ineffective [Unknown]
